FAERS Safety Report 11399243 (Version 1)
Quarter: 2015Q3

REPORT INFORMATION
  Report Type: Spontaneous
  Country: US (occurrence: None)
  Receive Date: 20150818
  Receipt Date: 20150818
  Transmission Date: 20151125
  Serious: No
  Sender: FDA-Public Use
  Company Number: None

PATIENT
  Age: 45 Year
  Sex: Female

DRUGS (10)
  1. TENORMIN [Concomitant]
     Active Substance: ATENOLOL
  2. ONDANSETRON [Concomitant]
     Active Substance: ONDANSETRON
  3. METHADONE [Concomitant]
     Active Substance: METHADONE HYDROCHLORIDE
  4. JOLESSA [Concomitant]
     Active Substance: ETHINYL ESTRADIOL\LEVONORGESTREL
  5. METHOTREXATE [Concomitant]
     Active Substance: METHOTREXATE
  6. CELEXA [Concomitant]
     Active Substance: CITALOPRAM HYDROBROMIDE
  7. ENBREL [Suspect]
     Active Substance: ETANERCEPT
     Indication: RHEUMATOID ARTHRITIS
     Dosage: 50MG, QW, SC
     Route: 058
     Dates: start: 200909
  8. FOLIC ACID. [Concomitant]
     Active Substance: FOLIC ACID
  9. DICYCLOMINE [Concomitant]
     Active Substance: DICYCLOMINE HYDROCHLORIDE
  10. VITAMIN D [Concomitant]
     Active Substance: CHOLECALCIFEROL

REACTIONS (1)
  - Drug dose omission [None]
